FAERS Safety Report 4853136-5 (Version None)
Quarter: 2005Q4

REPORT INFORMATION
  Report Type: 
  Country: None (occurrence: None)
  Receive Date: 20051212
  Receipt Date: 20051123
  Transmission Date: 20060501
  Serious: Yes (Other)
  Sender: FDA-Public Use
  Company Number: 6018890

PATIENT
  Age: 71 Year
  Sex: Male

DRUGS (1)
  1. FENAC                         (DICLOFENAC SODIUM) [Suspect]
     Indication: OSTEOARTHRITIS
     Dosage: 25,000 MG (25 MG, 1 IN 1 D) ORAL
     Route: 048

REACTIONS (2)
  - RETINAL DETACHMENT [None]
  - RETINAL TEAR [None]
